FAERS Safety Report 11673439 (Version 1)
Quarter: 2015Q4

REPORT INFORMATION
  Report Type: Spontaneous
  Country: US (occurrence: US)
  Receive Date: 20151028
  Receipt Date: 20151028
  Transmission Date: 20160304
  Serious: Yes (Other)
  Sender: FDA-Public Use
  Company Number: US-JNJFOC-20151013203

PATIENT
  Age: 65 Year
  Sex: Female
  Weight: 113.4 kg

DRUGS (4)
  1. DURAGESIC [Suspect]
     Active Substance: FENTANYL
     Indication: BACK PAIN
     Route: 062
     Dates: end: 201504
  2. DURAGESIC [Suspect]
     Active Substance: FENTANYL
     Indication: BACK PAIN
     Dosage: 12 UG/HR PATCH AND 25 UG/HR PATCH
     Route: 062
     Dates: start: 201504
  3. DURAGESIC [Suspect]
     Active Substance: FENTANYL
     Indication: BACK PAIN
     Route: 062
     Dates: start: 2015
  4. DURAGESIC [Suspect]
     Active Substance: FENTANYL
     Indication: BACK PAIN
     Route: 062
     Dates: start: 20151016

REACTIONS (14)
  - Underdose [Unknown]
  - Wrong technique in product usage process [Unknown]
  - Drug dependence [Recovered/Resolved]
  - Eating disorder [Recovered/Resolved]
  - Weight decreased [Unknown]
  - Hypokinesia [Recovered/Resolved]
  - Thyroid neoplasm [Not Recovered/Not Resolved]
  - Onychalgia [Recovered/Resolved]
  - Feeling abnormal [Recovered/Resolved]
  - Pain [Recovered/Resolved]
  - Insomnia [Recovered/Resolved]
  - Product quality issue [Unknown]
  - Abdominal discomfort [Recovered/Resolved]
  - Arthralgia [Recovered/Resolved]

NARRATIVE: CASE EVENT DATE: 2012
